FAERS Safety Report 21397459 (Version 1)
Quarter: 2022Q3

REPORT INFORMATION
  Report Type: Spontaneous
  Country: US (occurrence: None)
  Receive Date: 20220930
  Receipt Date: 20220930
  Transmission Date: 20221027
  Serious: Yes (Other)
  Sender: FDA-Public Use
  Company Number: None

PATIENT
  Age: 58 Year
  Sex: Male
  Weight: 104.33 kg

DRUGS (1)
  1. MAGNESIUM CITRATE LEMON [Suspect]
     Active Substance: MAGNESIUM CITRATE
     Indication: Bowel preparation
     Dates: start: 20220721, end: 20220721

REACTIONS (16)
  - Recalled product administered [None]
  - Product contamination [None]
  - Malaise [None]
  - Vomiting [None]
  - Diarrhoea [None]
  - Abdominal pain [None]
  - Insomnia [None]
  - Anxiety [None]
  - Fatigue [None]
  - Irritability [None]
  - Pruritus [None]
  - Hot flush [None]
  - Dyspnoea [None]
  - Heart rate increased [None]
  - Blood pressure increased [None]
  - Headache [None]

NARRATIVE: CASE EVENT DATE: 20220721
